FAERS Safety Report 10105291 (Version 2)
Quarter: 2014Q2

REPORT INFORMATION
  Report Type: Other
  Country: US (occurrence: US)
  Receive Date: 20140424
  Receipt Date: 20140618
  Transmission Date: 20141212
  Serious: Yes (Hospitalization, Other)
  Sender: FDA-Public Use
  Company Number: US-GSKPPD-2014GSK001180

PATIENT
  Age: 47 Year
  Sex: Male

DRUGS (6)
  1. AVANDIA [Suspect]
     Indication: DIABETES MELLITUS
     Route: 048
     Dates: start: 20051020
  2. AVANDAMET [Suspect]
     Indication: DIABETES MELLITUS
     Dosage: 2 MG/500 MG
     Dates: start: 20040414
  3. CATAPRES [Concomitant]
  4. METOPROLOL [Concomitant]
  5. LISINOPRIL [Concomitant]
  6. ADALAT CC [Concomitant]

REACTIONS (1)
  - Cerebrovascular accident [Recovered/Resolved]
